FAERS Safety Report 4575002-5 (Version None)
Quarter: 2005Q1

REPORT INFORMATION
  Report Type: 
  Country: None (occurrence: None)
  Receive Date: 20050208
  Receipt Date: 20041227
  Transmission Date: 20050727
  Serious: Yes (Hospitalization, Other)
  Sender: FDA-Public Use
  Company Number: JP-BRISTOL-MYERS SQUIBB COMPANY-12805644

PATIENT
  Age: 68 Year
  Sex: Male

DRUGS (2)
  1. TAXOL [Suspect]
     Indication: LUNG NEOPLASM MALIGNANT
     Dosage: START DATE:  28-SEP-2004
     Route: 042
     Dates: start: 20040928, end: 20041101
  2. PARAPLATIN [Suspect]
     Indication: LUNG NEOPLASM MALIGNANT
     Dosage: START DATE:  28-SEP-2004
     Route: 042
     Dates: start: 20040928, end: 20041101

REACTIONS (3)
  - DEMENTIA [None]
  - GASTRIC ULCER HAEMORRHAGE [None]
  - INTESTINAL OBSTRUCTION [None]
